FAERS Safety Report 16428678 (Version 1)
Quarter: 2019Q2

REPORT INFORMATION
  Report Type: Spontaneous
  Country: US (occurrence: US)
  Receive Date: 20190506
  Receipt Date: 20190506
  Transmission Date: 20190711
  Serious: Yes (Hospitalization)
  Sender: FDA-Public Use
  Company Number: None

PATIENT
  Age: 74 Year
  Sex: Male
  Weight: 116.12 kg

DRUGS (1)
  1. APIXABAN [Suspect]
     Active Substance: APIXABAN
     Indication: ATRIAL FIBRILLATION
     Route: 048
     Dates: start: 20190108, end: 20190307

REACTIONS (3)
  - Duodenal ulcer [None]
  - Gastrointestinal haemorrhage [None]
  - Helicobacter test positive [None]

NARRATIVE: CASE EVENT DATE: 20190301
